FAERS Safety Report 13842166 (Version 2)
Quarter: 2017Q3

REPORT INFORMATION
  Report Type: Report from Study
  Country: US (occurrence: US)
  Receive Date: 20170807
  Receipt Date: 20170830
  Transmission Date: 20171127
  Serious: No
  Sender: FDA-Public Use
  Company Number: US-AMGEN-USASL2017118147

PATIENT
  Age: 34 Year
  Sex: Male
  Weight: 87.98 kg

DRUGS (1)
  1. ENBREL [Suspect]
     Active Substance: ETANERCEPT
     Indication: PSORIATIC ARTHROPATHY
     Dosage: 50 MG/ML, QWK
     Route: 058
     Dates: start: 20170413

REACTIONS (1)
  - Injection site reaction [Recovering/Resolving]

NARRATIVE: CASE EVENT DATE: 201706
